FAERS Safety Report 5753579-1 (Version None)
Quarter: 2008Q2

REPORT INFORMATION
  Report Type: 
  Country: None (occurrence: None)
  Receive Date: 20080530
  Receipt Date: 20080523
  Transmission Date: 20081010
  Serious: Yes (Other)
  Sender: FDA-Public Use
  Company Number: US-BAYER-200811393BCC

PATIENT
  Age: 72 Year
  Sex: Male
  Weight: 95 kg

DRUGS (5)
  1. ALKA SELTZER PLUS FLU [Suspect]
     Indication: INFLUENZA
     Dosage: TOTAL DAILY DOSE: 6 DF
     Route: 048
     Dates: start: 20070301, end: 20070301
  2. ALKA SELTZER PLUS FLU [Suspect]
     Dosage: TOTAL DAILY DOSE: 6 DF
     Route: 048
     Dates: start: 20080404
  3. HIGH BLOOD PRESSURE MEDICATION [Concomitant]
  4. CHOLESTEROL MEDICATION [Concomitant]
  5. HEART MEDICATION [Concomitant]

REACTIONS (2)
  - DIZZINESS [None]
  - SYNCOPE [None]
